FAERS Safety Report 8883688 (Version 1)
Quarter: 2012Q4

REPORT INFORMATION
  Report Type: 
  Country: US (occurrence: US)
  Receive Date: 20121102
  Receipt Date: 20121102
  Transmission Date: 20130627
  Serious: No
  Sender: FDA-Public Use
  Company Number: US-GLAXOSMITHKLINE-A0984602A

PATIENT
  Age: 63 Year
  Sex: Male
  Weight: 70.5 kg

DRUGS (11)
  1. HORIZANT [Suspect]
     Indication: RESTLESS LEGS SYNDROME
     Dosage: 600MG Per day
     Route: 048
     Dates: start: 201206, end: 20120713
  2. ZOLOFT [Concomitant]
     Dosage: 150MG Per day
  3. CRESTOR [Concomitant]
  4. METFORMIN [Concomitant]
     Dosage: 500MG Twice per day
  5. ASPIRIN [Concomitant]
  6. ISOSORBIDE [Concomitant]
  7. LEVOTHYROXINE [Concomitant]
  8. PANTOPRAZOLE [Concomitant]
  9. JALYN [Concomitant]
  10. NUCYNTA [Concomitant]
  11. LUNESTA [Concomitant]

REACTIONS (2)
  - Rash papular [Recovering/Resolving]
  - Pruritus [Unknown]
